FAERS Safety Report 5764661-7 (Version None)
Quarter: 2008Q2

REPORT INFORMATION
  Report Type: 
  Country: None (occurrence: None)
  Receive Date: 20080611
  Receipt Date: 20080602
  Transmission Date: 20081010
  Serious: Yes (Other)
  Sender: FDA-Public Use
  Company Number: PHNU2008DE01968

PATIENT
  Age: 54 Year
  Sex: Male

DRUGS (9)
  1. RASILEZ [Suspect]
     Indication: HYPERTENSION
  2. CARMEN [Concomitant]
  3. BISOMERCK [Concomitant]
  4. LISINOPRIL AND HYDROCHLOROTHIAZIDE [Concomitant]
     Dosage: 1 DF, BID
  5. ASPIRIN [Concomitant]
  6. CLOPIDOGREL [Concomitant]
  7. SIMVASTATIN [Concomitant]
  8. OMEPRAZOLE [Concomitant]
  9. LEXOTANIL [Concomitant]

REACTIONS (3)
  - ARRHYTHMIA [None]
  - BLOOD PRESSURE INCREASED [None]
  - RESTLESSNESS [None]
